FAERS Safety Report 9705356 (Version 1)
Quarter: 2013Q4

REPORT INFORMATION
  Report Type: Spontaneous
  Country: CO (occurrence: CO)
  Receive Date: 20131122
  Receipt Date: 20131122
  Transmission Date: 20140711
  Serious: Yes (Hospitalization)
  Sender: FDA-Public Use
  Company Number: CO-PFIZER INC-2013334268

PATIENT
  Age: 14 Year
  Sex: Male

DRUGS (4)
  1. GENOTROPIN [Suspect]
     Indication: GROWTH HORMONE DEFICIENCY
     Dosage: 2.6 MG, 1X/DAY
     Route: 058
     Dates: start: 201309
  2. APIDRA [Concomitant]
     Indication: DIABETES MELLITUS
     Dosage: 14 IU, 1X/DAY
     Route: 058
     Dates: start: 2010
  3. LANTUS [Concomitant]
     Indication: DIABETES MELLITUS
     Dosage: 56 IU, 1X/DAY
     Route: 058
     Dates: start: 2003
  4. METFORMIN [Concomitant]
     Indication: DIABETES MELLITUS
     Dosage: UNK
     Route: 048
     Dates: start: 201308

REACTIONS (1)
  - Asphyxia [Not Recovered/Not Resolved]
